FAERS Safety Report 6525659-4 (Version None)
Quarter: 2009Q4

REPORT INFORMATION
  Report Type: 
  Country: None (occurrence: None)
  Receive Date: 20091214
  Receipt Date: 20090130
  Transmission Date: 20100525
  Serious: Yes (Other)
  Sender: FDA-Public Use
  Company Number: 611438

PATIENT
  Age: 37 Year
  Sex: Female

DRUGS (5)
  1. PEGASYS [Suspect]
     Indication: HEPATITIS C
     Dosage: 180 UG 1 PER WEEK SUBCUTANEOUS
     Route: 058
     Dates: start: 20081107
  2. COPEGUS [Suspect]
     Indication: HEPATITIS C
     Dosage: 1200 MG DAILY
     Dates: start: 20081107
  3. TRAZODONE HCL [Concomitant]
  4. ZANAFLEX [Concomitant]
  5. ALPRAZOLAM [Concomitant]

REACTIONS (7)
  - DEPRESSION [None]
  - FATIGUE [None]
  - NAUSEA [None]
  - NIGHTMARE [None]
  - PAIN [None]
  - PYREXIA [None]
  - WHITE BLOOD CELL COUNT DECREASED [None]
